FAERS Safety Report 12477049 (Version 8)
Quarter: 2016Q4

REPORT INFORMATION
  Report Type: Spontaneous
  Country: US (occurrence: US)
  Receive Date: 20160617
  Receipt Date: 20161102
  Transmission Date: 20170207
  Serious: Yes (Hospitalization)
  Sender: FDA-Public Use
  Company Number: US-TAKEDA-2016MPI005566

PATIENT
  Age: 80 Year
  Sex: Female
  Weight: 53.52 kg

DRUGS (20)
  1. MULTIVITAMIN                       /07504101/ [Concomitant]
     Active Substance: VITAMINS
     Dosage: UNK
     Route: 065
  2. LIPITOR [Concomitant]
     Active Substance: ATORVASTATIN CALCIUM
     Dosage: 10 MG, QD
     Route: 048
  3. COMPAZINE                          /00013302/ [Concomitant]
     Active Substance: PROCHLORPERAZINE EDISYLATE
     Dosage: 10 MG, Q6HR
     Route: 048
  4. VELCADE [Suspect]
     Active Substance: BORTEZOMIB
     Indication: PLASMA CELL MYELOMA
     Dosage: 2 MG, UNK
     Route: 058
     Dates: start: 201602, end: 20160520
  5. DEXAMETHASONE. [Suspect]
     Active Substance: DEXAMETHASONE
     Indication: PRODUCT USED FOR UNKNOWN INDICATION
     Dosage: 20 MG, 1/WEEK
     Route: 048
  6. THERA-M [Concomitant]
     Dosage: UNK, QD
     Route: 048
  7. PERCOCET                           /00446701/ [Concomitant]
     Active Substance: ACETAMINOPHEN\OXYCODONE HYDROCHLORIDE\OXYCODONE TEREPHTHALATE
     Indication: PAIN
     Dosage: UNK
     Route: 048
  8. ZOVIRAX [Concomitant]
     Active Substance: ACYCLOVIR
     Dosage: 400 MG, BID
     Route: 048
  9. NIACIN. [Concomitant]
     Active Substance: NIACIN
     Dosage: UNK
  10. TYLENOL [Concomitant]
     Active Substance: ACETAMINOPHEN
     Dosage: 650 MG, 1/WEEK
     Route: 048
     Dates: end: 20160517
  11. LORAZEPAM. [Concomitant]
     Active Substance: LORAZEPAM
     Dosage: UNK
     Route: 065
  12. OMEPRAZOLE. [Concomitant]
     Active Substance: OMEPRAZOLE
     Dosage: 20 MG, QD
     Route: 065
  13. PROCHLORPERAZIN [Concomitant]
     Active Substance: PROCHLORPERAZINE
     Dosage: 10 MG, UNK
     Route: 065
  14. FUROSEMIDE. [Concomitant]
     Active Substance: FUROSEMIDE
     Dosage: UNK
     Route: 065
  15. RED YEAST RICE WITH PLANT STEROLS [Concomitant]
     Dosage: 600 MG, UNK
     Route: 065
  16. INOSITOL NIACINATE [Concomitant]
     Active Substance: INOSITOL NIACINATE
     Dosage: UNK, QD
     Route: 048
  17. PRILOSEC [Concomitant]
     Active Substance: OMEPRAZOLE MAGNESIUM
     Dosage: 20 MG, QD
     Route: 048
  18. SENNA-S                            /00936101/ [Concomitant]
     Indication: CONSTIPATION
     Dosage: UNK
     Route: 048
  19. VITAMIN D3 [Concomitant]
     Active Substance: CHOLECALCIFEROL
     Dosage: 1000 IU, UNK
     Route: 065
  20. LIDODERM [Concomitant]
     Active Substance: LIDOCAINE
     Dosage: UNK, QD
     Route: 062

REACTIONS (5)
  - Cholecystitis acute [Recovering/Resolving]
  - Atrioventricular block complete [Recovering/Resolving]
  - Pericardial effusion [Recovering/Resolving]
  - Oedema peripheral [Recovering/Resolving]
  - Bradycardia [Recovering/Resolving]

NARRATIVE: CASE EVENT DATE: 20160316
